FAERS Safety Report 4770536-2 (Version None)
Quarter: 2005Q3

REPORT INFORMATION
  Report Type: 
  Country: None (occurrence: None)
  Receive Date: 20050914
  Receipt Date: 20050901
  Transmission Date: 20060218
  Serious: Yes (Hospitalization)
  Sender: FDA-Public Use
  Company Number: 6017035

PATIENT
  Age: 73 Year
  Sex: Female

DRUGS (5)
  1. LEVOTHYROXINE SODIUM [Suspect]
     Dosage: ORAL
     Route: 048
     Dates: start: 19971215
  2. DAFLON (TABLET) (DIOSMIN) [Suspect]
     Dosage: ORAL
     Route: 048
     Dates: start: 20000701
  3. FORLAX (POWDER FOR ORAL SOLUTION) (MACROGOL) [Suspect]
     Dosage: ORAL
     Route: 048
     Dates: start: 20040701
  4. ACETAMINOPHEN [Concomitant]
  5. ARTHRO-DRAINOL (ORAL SOLUTION) [Concomitant]

REACTIONS (2)
  - ERYTHEMA ANNULARE [None]
  - PRURITUS [None]
